FAERS Safety Report 4318485-8 (Version None)
Quarter: 2004Q1

REPORT INFORMATION
  Report Type: 
  Country: None (occurrence: None)
  Receive Date: 20040316
  Receipt Date: 20040316
  Transmission Date: 20041129
  Serious: Yes (Disabling)
  Sender: FDA-Public Use
  Company Number: None

PATIENT
  Age: 48 Year
  Sex: Female
  Weight: 49.8957 kg

DRUGS (2)
  1. ZICAM NASAL GEL (ZINC) [Suspect]
     Indication: NASOPHARYNGITIS
     Dosage: 2 PUMPS ~ 3 X DAILY
     Dates: start: 20031204, end: 20031213
  2. ZICAM NASAL GEL (ZINC) [Suspect]
     Indication: NASOPHARYNGITIS
     Dosage: 2 PUMPS ~ 3 X DAILY
     Dates: start: 20040227

REACTIONS (1)
  - PAROSMIA [None]
